FAERS Safety Report 4850412-7 (Version None)
Quarter: 2005Q4

REPORT INFORMATION
  Report Type: 
  Country: None (occurrence: None)
  Receive Date: 20051123
  Receipt Date: 20051011
  Transmission Date: 20060501
  Serious: No
  Sender: FDA-Public Use
  Company Number: TPA2005A01226

PATIENT
  Age: 65 Year
  Sex: Female
  Weight: 74.8435 kg

DRUGS (10)
  1. ROZEREM [Suspect]
     Indication: DELAYED SLEEP PHASE
     Dosage: 8 MG, QHS, PER ORAL
     Route: 048
     Dates: start: 20050920
  2. VALIUM (DIAZEPAM) (10 MILLIGRAM) [Concomitant]
  3. LEVOXYL (LEVOTHYROXINE SODIUM) (0.08 MILLIGRAM) [Concomitant]
  4. ZOCOR (SIMVASTATIN) (40 MILLIGRAM) [Concomitant]
  5. NEXIUM (ESOMEPRAZOLE MAGNESIUM) (40 MILLIGRAM) [Concomitant]
  6. MOBIC [Concomitant]
  7. NORVASC [Concomitant]
  8. ACETAMINOPHEN [Concomitant]
  9. UNKNOWN MACULAR DEGENERATION MEDICATION (ALL OTHER THERAPEUTIC PRODUCT [Concomitant]
  10. OSCAL (CALCIUM CARBONATE) [Concomitant]

REACTIONS (1)
  - DRUG INEFFECTIVE [None]
